FAERS Safety Report 7105468-8 (Version None)
Quarter: 2010Q4

REPORT INFORMATION
  Report Type: 
  Country: None (occurrence: None)
  Receive Date: 20101110
  Receipt Date: 20101027
  Transmission Date: 20110411
  Serious: Yes (Hospitalization)
  Sender: FDA-Public Use
  Company Number: 007779

PATIENT
  Sex: Female

DRUGS (7)
  1. CERTOLIZUMAB PEGOL [Suspect]
     Indication: RHEUMATOID ARTHRITIS
     Dosage: 1 DOSE EVERY TWO WEEKS SUBCUTANEOUS, 1 DOSE EVERY TWO WEEKS SUBCUTANEOUS
     Route: 058
     Dates: start: 20081224, end: 20100216
  2. CERTOLIZUMAB PEGOL [Suspect]
     Indication: RHEUMATOID ARTHRITIS
     Dosage: 1 DOSE EVERY TWO WEEKS SUBCUTANEOUS, 1 DOSE EVERY TWO WEEKS SUBCUTANEOUS
     Route: 058
     Dates: start: 20100416
  3. FOLIC ACID [Concomitant]
  4. PREDNISOLONE [Concomitant]
  5. ISONIAZID [Concomitant]
  6. METHOTREXATE [Concomitant]
  7. LOXOPROFEN SODIUM [Concomitant]

REACTIONS (1)
  - OVARIAN ADENOMA [None]
